FAERS Safety Report 17983802 (Version 1)
Quarter: 2020Q3

REPORT INFORMATION
  Report Type: Spontaneous
  Country: US (occurrence: US)
  Receive Date: 20200706
  Receipt Date: 20200706
  Transmission Date: 20201103
  Serious: Yes (Other)
  Sender: FDA-Public Use
  Company Number: US-PFIZER INC-2020256501

PATIENT
  Age: 73 Year
  Sex: Female

DRUGS (10)
  1. TIMOLOL. [Concomitant]
     Active Substance: TIMOLOL
     Route: 061
  2. PREDNISOLONE ACETATE. [Concomitant]
     Active Substance: PREDNISOLONE ACETATE
     Indication: NECROTISING RETINITIS
     Dosage: UNK, 4X/DAY
  3. BRIMONIDINE [Concomitant]
     Active Substance: BRIMONIDINE TARTRATE
     Dosage: UNK
     Route: 061
  4. DIFLUPREDNATE [Concomitant]
     Active Substance: DIFLUPREDNATE
     Indication: NECROTISING RETINITIS
     Dosage: UNK, 4X/DAY
     Route: 061
  5. GLUCOSE [Suspect]
     Active Substance: DEXTROSE
     Indication: NECROTISING RETINITIS
     Dosage: UNK
     Route: 042
  6. ACYCLOVIR [ACICLOVIR] [Concomitant]
     Active Substance: ACYCLOVIR
     Indication: NECROTISING RETINITIS
     Dosage: UNK
     Route: 042
  7. DORZOLAMIDE [Concomitant]
     Active Substance: DORZOLAMIDE
     Route: 061
  8. LATANOPROST. [Concomitant]
     Active Substance: LATANOPROST
     Route: 061
  9. TRIMETHOPRIM SULFAMETHOXAZOLE [Suspect]
     Active Substance: SULFAMETHOXAZOLE\TRIMETHOPRIM
     Indication: NECROTISING RETINITIS
     Dosage: UNK
     Route: 042
  10. CYCLOPENTOLATE. [Concomitant]
     Active Substance: CYCLOPENTOLATE
     Indication: NECROTISING RETINITIS
     Dosage: UNK, 2X/DAY

REACTIONS (1)
  - Hyponatraemia [Recovering/Resolving]
